FAERS Safety Report 7048545-2 (Version None)
Quarter: 2010Q4

REPORT INFORMATION
  Report Type: 
  Country: None (occurrence: None)
  Receive Date: 20101008
  Receipt Date: 20100917
  Transmission Date: 20110411
  Serious: Yes (Other)
  Sender: FDA-Public Use
  Company Number: 699211

PATIENT
  Age: 7 Month

DRUGS (1)
  1. FENTANYL CITRATE [Suspect]
     Indication: SURGERY
     Dates: start: 20100101

REACTIONS (4)
  - APNOEA [None]
  - MIOSIS [None]
  - OFF LABEL USE [None]
  - SEDATION [None]
